FAERS Safety Report 9439618 (Version 2)
Quarter: 2013Q3

REPORT INFORMATION
  Report Type: Spontaneous
  Country: DE (occurrence: DE)
  Receive Date: 20130805
  Receipt Date: 20130808
  Transmission Date: 20140515
  Serious: Yes (Other)
  Sender: FDA-Public Use
  Company Number: DE-JNJFOC-20130715182

PATIENT
  Sex: Female

DRUGS (2)
  1. ROGAINE FOR WOMEN REGULAR STRENGTH 2% [Suspect]
     Route: 061
  2. ROGAINE FOR WOMEN REGULAR STRENGTH 2% [Suspect]
     Indication: PRODUCT USED FOR UNKNOWN INDICATION
     Route: 061

REACTIONS (8)
  - Loss of consciousness [Recovered/Resolved]
  - Cardiovascular disorder [Recovered/Resolved]
  - Visual impairment [Recovered/Resolved]
  - Drug level increased [Unknown]
  - Syncope [Recovered/Resolved]
  - Asthenia [Recovered/Resolved]
  - Eye swelling [Recovered/Resolved]
  - Dizziness [Recovered/Resolved]
